FAERS Safety Report 9867097 (Version 1)
Quarter: 2014Q1

REPORT INFORMATION
  Report Type: Spontaneous
  Country: US (occurrence: None)
  Receive Date: 20140203
  Receipt Date: 20140203
  Transmission Date: 20141002
  Serious: Yes (Life-Threatening, Hospitalization, Other)
  Sender: FDA-Public Use
  Company Number: None

PATIENT
  Age: 71 Year
  Sex: Female
  Weight: 97.52 kg

DRUGS (17)
  1. AZATHIOPRINE [Suspect]
     Indication: AUTOIMMUNE DISORDER
     Route: 048
     Dates: start: 20131217, end: 20140104
  2. AZATHIOPRINE [Suspect]
     Indication: LIVER DISORDER
     Route: 048
     Dates: start: 20131217, end: 20140104
  3. LISINOPRIL [Concomitant]
  4. PREDNISONE [Concomitant]
  5. POTASSIUM [Concomitant]
  6. CINNOMON [Concomitant]
  7. GLUCO-SECUTE [Concomitant]
  8. CHROMIUM [Concomitant]
  9. YIELDING COBOSOLIC [Concomitant]
  10. VANADYL SULFATE [Concomitant]
  11. GYMMEMA SYLVESTRE LEAF ASTTRACT [Concomitant]
  12. YIELDING GYMMONIC ACID [Concomitant]
  13. CINNAMON BARK EXTRACT [Concomitant]
  14. ALCHALIPORIC ACID [Concomitant]
  15. BITTER MELON EXTRACT [Concomitant]
  16. CHARANTAN [Concomitant]
  17. LAGESTROEMIA SPECIVEAL (BANANABA_ [Concomitant]

REACTIONS (9)
  - Shock [None]
  - Erythema [None]
  - Renal failure [None]
  - Heart rate increased [None]
  - Body temperature increased [None]
  - Nasal discomfort [None]
  - Mouth ulceration [None]
  - Dizziness [None]
  - Unevaluable event [None]
